FAERS Safety Report 4801912-7 (Version None)
Quarter: 2005Q4

REPORT INFORMATION
  Report Type: 
  Country: None (occurrence: None)
  Receive Date: 20051014
  Receipt Date: 20051014
  Transmission Date: 20060501
  Serious: Yes (Hospitalization)
  Sender: FDA-Public Use
  Company Number: None

PATIENT
  Age: 82 Year
  Sex: Female
  Weight: 76 kg

DRUGS (15)
  1. GABAPENTIN [Suspect]
     Indication: PAIN
     Dosage: 300 MG AT BEDTIME PO
     Route: 048
  2. HUMALOG [Concomitant]
  3. NITROGLYCERIN [Concomitant]
  4. ZOLOFT [Concomitant]
  5. STARLIX [Concomitant]
  6. ATROVENT [Concomitant]
  7. ZANTAC [Concomitant]
  8. LIDODERM PATCH [Concomitant]
  9. LEVOXYL [Concomitant]
  10. ZETIA [Concomitant]
  11. BENICAR [Concomitant]
  12. COREG [Concomitant]
  13. OS-CAL D [Concomitant]
  14. FIBERCON [Concomitant]
  15. COUMADIN [Concomitant]

REACTIONS (8)
  - ASTHENIA [None]
  - EOSINOPHILS URINE PRESENT [None]
  - HYPERKALAEMIA [None]
  - HYPOVOLAEMIA [None]
  - RENAL CYST [None]
  - RENAL DISORDER [None]
  - RENAL FAILURE ACUTE [None]
  - RENAL SCAN ABNORMAL [None]
